FAERS Safety Report 11243678 (Version 1)
Quarter: 2015Q3

REPORT INFORMATION
  Report Type: Spontaneous
  Country: GB (occurrence: GB)
  Receive Date: 20150707
  Receipt Date: 20150707
  Transmission Date: 20151125
  Serious: Yes (Other)
  Sender: FDA-Public Use
  Company Number: GB-UCBSA-2015021471

PATIENT
  Age: 42 Month
  Sex: Female
  Weight: 10 kg

DRUGS (1)
  1. KEPPRA [Suspect]
     Active Substance: LEVETIRACETAM
     Indication: SEIZURE
     Dosage: 300 MG, 2X/DAY (BID)
     Route: 048
     Dates: start: 20150525, end: 20150608

REACTIONS (4)
  - Rash [Unknown]
  - Swelling face [Unknown]
  - Product substitution issue [Unknown]
  - Wheezing [Unknown]

NARRATIVE: CASE EVENT DATE: 20150525
